FAERS Safety Report 24128465 (Version 1)
Quarter: 2024Q3

REPORT INFORMATION
  Report Type: Report from Study
  Country: US (occurrence: US)
  Receive Date: 20240723
  Receipt Date: 20240723
  Transmission Date: 20241017
  Serious: Yes (Hospitalization, Other)
  Sender: ABBVIE
  Company Number: US-ABBVIE-5845224

PATIENT
  Age: 61 Year
  Sex: Female

DRUGS (1)
  1. HUMIRA [Suspect]
     Active Substance: ADALIMUMAB
     Indication: Rheumatoid arthritis
     Route: 058
     Dates: start: 20150511

REACTIONS (5)
  - Nephrolithiasis [Unknown]
  - Coronary artery occlusion [Unknown]
  - Pain [Unknown]
  - Renal failure [Unknown]
  - Septic shock [Unknown]

NARRATIVE: CASE EVENT DATE: 20240612
